FAERS Safety Report 9443613 (Version 1)
Quarter: 2013Q3

REPORT INFORMATION
  Report Type: Spontaneous
  Country: ES (occurrence: ES)
  Receive Date: 20130806
  Receipt Date: 20130806
  Transmission Date: 20140515
  Serious: Yes (Other)
  Sender: FDA-Public Use
  Company Number: PHHY2011ES85170

PATIENT
  Age: 18 Year
  Sex: Male

DRUGS (2)
  1. PARACETAMOL [Suspect]
     Indication: HEADACHE
  2. BUDESONIDE [Concomitant]

REACTIONS (3)
  - Liver injury [Recovered/Resolved]
  - Hypersensitivity [Recovered/Resolved]
  - Pyrexia [Recovered/Resolved]
